FAERS Safety Report 9079253 (Version 2)
Quarter: 2014Q1

REPORT INFORMATION
  Report Type: Spontaneous
  Country: US (occurrence: US)
  Receive Date: 20130130
  Receipt Date: 20140318
  Transmission Date: 20141002
  Serious: Yes (Hospitalization)
  Sender: FDA-Public Use
  Company Number: US-009507513-1301USA013897

PATIENT
  Sex: Male

DRUGS (1)
  1. PROPECIA [Suspect]
     Indication: ANDROGENETIC ALOPECIA
     Dosage: 1 MG, UNK
     Dates: start: 2007, end: 20100923

REACTIONS (8)
  - Palpitations [Unknown]
  - Erectile dysfunction [Unknown]
  - Cognitive disorder [Not Recovered/Not Resolved]
  - Loss of libido [Unknown]
  - Sexual dysfunction [Not Recovered/Not Resolved]
  - Hypertension [Unknown]
  - Amnesia [Unknown]
  - Apathy [Unknown]
